FAERS Safety Report 21129265 (Version 1)
Quarter: 2022Q3

REPORT INFORMATION
  Report Type: Other
  Country: NL (occurrence: ES)
  Receive Date: 20220725
  Receipt Date: 20220725
  Transmission Date: 20221026
  Serious: Yes (Other)
  Sender: FDA-Public Use
  Company Number: None

PATIENT

DRUGS (1)
  1. PITAVASTATIN [Suspect]
     Active Substance: PITAVASTATIN
     Indication: Dyslipidaemia
     Dosage: 4 MG, QD
     Route: 048
     Dates: start: 20120102, end: 20120628

REACTIONS (3)
  - Anosmia [Unknown]
  - Ageusia [Unknown]
  - Myopathy [Unknown]

NARRATIVE: CASE EVENT DATE: 20120601
